FAERS Safety Report 8151996-6 (Version None)
Quarter: 2012Q1

REPORT INFORMATION
  Report Type: 
  Country: None (occurrence: None)
  Receive Date: 20120221
  Receipt Date: 20120216
  Transmission Date: 20120608
  Serious: No
  Sender: FDA-Public Use
  Company Number: US-PFIZER INC-2012043738

PATIENT
  Sex: Male

DRUGS (3)
  1. CADUET [Suspect]
     Indication: BLOOD PRESSURE ABNORMAL
     Dosage: 5/10MG DAILY
  2. CADUET [Suspect]
     Indication: BLOOD CHOLESTEROL ABNORMAL
  3. GEODON [Suspect]
     Indication: PARKINSON'S DISEASE
     Dosage: 160 MG, DAILY

REACTIONS (5)
  - SOMNOLENCE [None]
  - INCREASED APPETITE [None]
  - HYPERPHAGIA [None]
  - BLOOD TRIGLYCERIDES INCREASED [None]
  - HIGH DENSITY LIPOPROTEIN DECREASED [None]
